FAERS Safety Report 8405368 (Version 2)
Quarter: 2012Q4

REPORT INFORMATION
  Report Type: 
  Country: US (occurrence: US)
  Receive Date: 20120214
  Receipt Date: 20121018
  Transmission Date: 20130627
  Serious: Yes (Hospitalization)
  Sender: FDA-Public Use
  Company Number: US-JUTA GMBH-2012-02114

PATIENT
  Age: 22 Year
  Sex: Female

DRUGS (1)
  1. AMLODIPINE BESYLATE [Suspect]
     Indication: PRODUCT USED FOR UNKNOWN INDICATION
     Dosage: 425 mg, single
     Route: 048

REACTIONS (5)
  - Atrioventricular block complete [Recovered/Resolved]
  - Renal failure acute [Recovered/Resolved]
  - Tachycardia [Recovered/Resolved]
  - Hypotension [Recovered/Resolved]
  - Intentional overdose [Recovered/Resolved]
